FAERS Safety Report 7679227-1 (Version None)
Quarter: 2011Q3

REPORT INFORMATION
  Report Type: 
  Country: None (occurrence: None)
  Receive Date: 20110812
  Receipt Date: 20110803
  Transmission Date: 20111222
  Serious: Yes (Death, Hospitalization)
  Sender: FDA-Public Use
  Company Number: US-JNJFOC-20110802355

PATIENT
  Sex: Female

DRUGS (2)
  1. RISPERDAL [Suspect]
     Indication: BIPOLAR DISORDER
     Route: 048
     Dates: start: 20090501
  2. RISPERDAL [Suspect]
     Indication: DEPRESSION
     Route: 048
     Dates: start: 20090501

REACTIONS (1)
  - STEVENS-JOHNSON SYNDROME [None]
